FAERS Safety Report 8063933-3 (Version None)
Quarter: 2012Q1

REPORT INFORMATION
  Report Type: 
  Country: None (occurrence: None)
  Receive Date: 20120123
  Receipt Date: 20120112
  Transmission Date: 20120608
  Serious: Yes (Other)
  Sender: FDA-Public Use
  Company Number: FR-JNJFOC-20120105185

PATIENT
  Age: 25 Year
  Sex: Female

DRUGS (3)
  1. REMICADE [Suspect]
     Indication: CROHN'S DISEASE
     Route: 042
     Dates: start: 20120109
  2. IMURAN [Concomitant]
     Dates: start: 20070101
  3. REMICADE [Suspect]
     Route: 042
     Dates: start: 20080301

REACTIONS (1)
  - MALIGNANT MELANOMA [None]
